FAERS Safety Report 8076457-4 (Version None)
Quarter: 2012Q1

REPORT INFORMATION
  Report Type: 
  Country: None (occurrence: None)
  Receive Date: 20120127
  Receipt Date: 20120117
  Transmission Date: 20120608
  Serious: Yes (Other)
  Sender: FDA-Public Use
  Company Number: US-ROCHE-1032434

PATIENT
  Age: 86 Year
  Sex: Male

DRUGS (1)
  1. AVASTIN [Suspect]
     Indication: MACULAR DEGENERATION
     Route: 031
     Dates: start: 20110101

REACTIONS (3)
  - GASTROINTESTINAL DISORDER [None]
  - ASTHENIA [None]
  - MYELODYSPLASTIC SYNDROME [None]
